FAERS Safety Report 25639072 (Version 2)
Quarter: 2025Q4

REPORT INFORMATION
  Report Type: Spontaneous
  Country: US (occurrence: US)
  Receive Date: 20250804
  Receipt Date: 20251022
  Transmission Date: 20260118
  Serious: No
  Sender: NEUROCRINE BIOSCIENCES
  Company Number: US-NEUROCRINE BIOSCIENCES INC.-2025NBI09656

PATIENT
  Sex: Female

DRUGS (3)
  1. INGREZZA [Suspect]
     Active Substance: VALBENAZINE DITOSYLATE
     Indication: Tardive dyskinesia
     Dosage: UNK, QOD
     Route: 065
  2. INGREZZA [Suspect]
     Active Substance: VALBENAZINE DITOSYLATE
     Dosage: UNK UNK, QD
     Route: 065
  3. INGREZZA [Suspect]
     Active Substance: VALBENAZINE DITOSYLATE
     Dosage: UNK, QD
     Route: 065

REACTIONS (2)
  - Rash [Recovered/Resolved]
  - Rash [Unknown]
